FAERS Safety Report 6061862-8 (Version None)
Quarter: 2009Q1

REPORT INFORMATION
  Report Type: 
  Country: None (occurrence: None)
  Receive Date: 20090202
  Receipt Date: 20090121
  Transmission Date: 20090719
  Serious: Yes (Other)
  Sender: FDA-Public Use
  Company Number: PHEH2009US01136

PATIENT
  Sex: Male

DRUGS (2)
  1. VOLTAREN [Suspect]
     Dosage: UNK
     Route: 048
  2. VOLTAREN [Suspect]
     Dosage: UNK
     Dates: start: 20090120

REACTIONS (1)
  - KNEE ARTHROPLASTY [None]
